FAERS Safety Report 10941603 (Version 2)
Quarter: 2015Q2

REPORT INFORMATION
  Report Type: Spontaneous
  Country: US (occurrence: US)
  Receive Date: 20150322
  Receipt Date: 20150524
  Transmission Date: 20150821
  Serious: No
  Sender: FDA-Public Use
  Company Number: US-JNJFOC-20140618694

PATIENT
  Sex: Female
  Weight: 95.26 kg

DRUGS (3)
  1. METFORMIN [Concomitant]
     Active Substance: METFORMIN HYDROCHLORIDE
  2. INVOKANA [Suspect]
     Active Substance: CANAGLIFLOZIN
     Indication: TYPE 2 DIABETES MELLITUS
     Route: 048
     Dates: start: 20140502, end: 20140623
  3. INSULIN GLARGINE [Concomitant]
     Active Substance: INSULIN GLARGINE
     Dosage: 70 UNITS TWICE DAILY

REACTIONS (3)
  - Pollakiuria [Unknown]
  - Weight decreased [Unknown]
  - Back pain [Unknown]
